FAERS Safety Report 11625286 (Version 2)
Quarter: 2016Q2

REPORT INFORMATION
  Report Type: Spontaneous
  Country: GB (occurrence: GB)
  Receive Date: 20151013
  Receipt Date: 20160629
  Transmission Date: 20160815
  Serious: Yes (Death, Hospitalization)
  Sender: FDA-Public Use
  Company Number: GB-TEVA-599312ACC

PATIENT
  Age: 86 Year
  Sex: Male

DRUGS (10)
  1. AMOXICILLIN. [Suspect]
     Active Substance: AMOXICILLIN
     Dosage: 1500 MILLIGRAM DAILY;
     Route: 048
     Dates: start: 20150817, end: 20150823
  2. CO-AMOXICLAV [Suspect]
     Active Substance: AMOXICILLIN\CLAVULANIC ACID
     Dosage: 3 DOSAGE FORMS DAILY; 3 DOSAGE FORMS, 250MG/125MG
     Route: 048
     Dates: start: 20150824, end: 20150828
  3. SIMVASTATIN. [Concomitant]
     Active Substance: SIMVASTATIN
  4. PROPAFENONE. [Concomitant]
     Active Substance: PROPAFENONE
  5. CIPROFLOXACIN. [Suspect]
     Active Substance: CIPROFLOXACIN
     Dosage: 500 MILLIGRAM DAILY;
     Route: 048
     Dates: start: 20150827, end: 20150903
  6. BENDROFLUMETHIAZIDE [Concomitant]
     Active Substance: BENDROFLUMETHIAZIDE
  7. PREDNISOLONE. [Concomitant]
     Active Substance: PREDNISOLONE
  8. LANSOPRAZOLE. [Concomitant]
     Active Substance: LANSOPRAZOLE
  9. MIRTAZAPINE. [Concomitant]
     Active Substance: MIRTAZAPINE
  10. COLECALCIFEROL [Concomitant]
     Active Substance: CHOLECALCIFEROL

REACTIONS (2)
  - Death [Fatal]
  - Clostridium difficile colitis [Not Recovered/Not Resolved]

NARRATIVE: CASE EVENT DATE: 20150903
